FAERS Safety Report 9815815 (Version 3)
Quarter: 2014Q1

REPORT INFORMATION
  Report Type: Report from Study
  Country: US (occurrence: US)
  Receive Date: 20140114
  Receipt Date: 20140219
  Transmission Date: 20141002
  Serious: Yes (Hospitalization, Other)
  Sender: FDA-Public Use
  Company Number: US-ASTELLAS-2013US007575

PATIENT
  Age: 14 Year
  Sex: Male

DRUGS (8)
  1. TACROLIMUS OINTMENT [Suspect]
     Indication: DERMATITIS ATOPIC
     Dosage: 0.1 %, UNKNOWN/D
     Route: 061
     Dates: start: 200306, end: 2013
  2. PROAIR                             /00139502/ [Concomitant]
     Indication: PRODUCT USED FOR UNKNOWN INDICATION
     Dosage: UNK
     Route: 065
  3. LORATADINE [Concomitant]
     Indication: PRODUCT USED FOR UNKNOWN INDICATION
     Dosage: 10 MG, UNKNOWN/D
     Route: 065
  4. DAILY MULTIVITAMIN [Concomitant]
     Indication: PRODUCT USED FOR UNKNOWN INDICATION
     Dosage: UNK
     Route: 065
  5. DESONIDE [Concomitant]
     Indication: DERMATITIS ATOPIC
     Dosage: UNK
     Route: 065
  6. TRIAMCINOLONE [Concomitant]
     Indication: DERMATITIS ATOPIC
     Dosage: UNK
     Route: 065
  7. CETIRIZINE [Concomitant]
     Indication: HYPERSENSITIVITY
  8. AMITRIPTYLINE [Concomitant]
     Indication: PRODUCT USED FOR UNKNOWN INDICATION
     Dosage: UNK UNK, UNKNOWN/D
     Route: 065

REACTIONS (4)
  - Off label use [Unknown]
  - Crohn^s disease [Unknown]
  - Colitis [Not Recovered/Not Resolved]
  - Colitis [Recovering/Resolving]
